FAERS Safety Report 13523276 (Version 2)
Quarter: 2017Q2

REPORT INFORMATION
  Report Type: Spontaneous
  Country: US (occurrence: US)
  Receive Date: 20170508
  Receipt Date: 20170621
  Transmission Date: 20170830
  Serious: Yes (Death)
  Sender: FDA-Public Use
  Company Number: US-VIFOR (INTERNATIONAL) INC.-VIT-2017-01488

PATIENT
  Age: 84 Year
  Sex: Female

DRUGS (11)
  1. FUROSEMIDE. [Concomitant]
     Active Substance: FUROSEMIDE
  2. CLOPIDOGREL BISULFATE. [Concomitant]
     Active Substance: CLOPIDOGREL BISULFATE
  3. METOPROLOL SUCCINATE. [Concomitant]
     Active Substance: METOPROLOL SUCCINATE
  4. AMLODIPINE BESILATE [Concomitant]
     Active Substance: AMLODIPINE BESYLATE
  5. SODIUM CITRATE. [Concomitant]
     Active Substance: SODIUM CITRATE
  6. FOLIC ACID. [Concomitant]
     Active Substance: FOLIC ACID
  7. CALCIUM ACETATE. [Concomitant]
     Active Substance: CALCIUM ACETATE
     Indication: HYPERKALAEMIA
     Route: 048
     Dates: start: 20160826
  8. VELTASSA [Suspect]
     Active Substance: PATIROMER
     Indication: HYPERKALAEMIA
     Route: 048
     Dates: start: 20160826, end: 20170125
  9. CITRIC ACID [Concomitant]
     Active Substance: CITRIC ACID MONOHYDRATE
  10. PROCRIT [Concomitant]
     Active Substance: ERYTHROPOIETIN
  11. IRON [Concomitant]
     Active Substance: IRON

REACTIONS (2)
  - Nephropathy [Fatal]
  - Hospice care [Unknown]

NARRATIVE: CASE EVENT DATE: 201005
